FAERS Safety Report 19618798 (Version 1)
Quarter: 2021Q3

REPORT INFORMATION
  Report Type: Spontaneous
  Country: US (occurrence: US)
  Receive Date: 20210727
  Receipt Date: 20210727
  Transmission Date: 20211014
  Serious: Yes (Other)
  Sender: FDA-Public Use
  Company Number: US-ROCHE-2760908

PATIENT
  Age: 27 Year
  Sex: Female
  Weight: 123 kg

DRUGS (3)
  1. XELODA [Suspect]
     Active Substance: CAPECITABINE
     Route: 048
     Dates: start: 202103
  2. XELODA [Suspect]
     Active Substance: CAPECITABINE
     Route: 048
     Dates: start: 20210211, end: 20210224
  3. XELODA [Suspect]
     Active Substance: CAPECITABINE
     Indication: PRODUCT USED FOR UNKNOWN INDICATION
     Route: 048
     Dates: start: 202101

REACTIONS (8)
  - Diarrhoea [Recovered/Resolved]
  - Epistaxis [Unknown]
  - Palmar-plantar erythrodysaesthesia syndrome [Unknown]
  - Chest discomfort [Unknown]
  - Vomiting [Unknown]
  - Arthropod bite [Unknown]
  - Cellulitis [Unknown]
  - Blood count abnormal [Recovering/Resolving]

NARRATIVE: CASE EVENT DATE: 20210129
